FAERS Safety Report 13947422 (Version 3)
Quarter: 2018Q2

REPORT INFORMATION
  Report Type: Report from Study
  Country: JP (occurrence: JP)
  Receive Date: 20170908
  Receipt Date: 20180412
  Transmission Date: 20180711
  Serious: Yes (Other)
  Sender: FDA-Public Use
  Company Number: JP-ROCHE-1988908

PATIENT
  Age: 1 Year
  Sex: Female
  Weight: 10 kg

DRUGS (2)
  1. TOCILIZUMAB. [Suspect]
     Active Substance: TOCILIZUMAB
     Indication: KAWASAKI^S DISEASE
     Dosage: 80 MG
     Route: 041
     Dates: start: 20070727
  2. FROBEN [Concomitant]
     Active Substance: FLURBIPROFEN
     Dosage: DOSAGE IS UNCERTAIN.
     Route: 065
     Dates: start: 20070724, end: 20070813

REACTIONS (1)
  - Coronary artery aneurysm [Recovering/Resolving]

NARRATIVE: CASE EVENT DATE: 20070731
